FAERS Safety Report 17590394 (Version 1)
Quarter: 2020Q1

REPORT INFORMATION
  Report Type: Spontaneous
  Country: US (occurrence: US)
  Receive Date: 20200325
  Receipt Date: 20200325
  Transmission Date: 20200409
  Serious: No
  Sender: FDA-Public Use
  Company Number: None

PATIENT
  Age: 71 Year
  Sex: Male
  Weight: 151 kg

DRUGS (2)
  1. TICAGRELOR (TICAGRELOR 90MG TAB) [Suspect]
     Active Substance: TICAGRELOR
     Indication: VASCULAR OPERATION
     Route: 048
     Dates: start: 20190109, end: 20190114
  2. TICAGRELOR (TICAGRELOR 90MG TAB) [Suspect]
     Active Substance: TICAGRELOR
     Indication: PERCUTANEOUS CORONARY INTERVENTION
     Route: 048
     Dates: start: 20190109, end: 20190114

REACTIONS (3)
  - Respiratory depression [None]
  - Asthenia [None]
  - Dyspnoea [None]

NARRATIVE: CASE EVENT DATE: 20190114
